FAERS Safety Report 26121416 (Version 1)
Quarter: 2025Q4

REPORT INFORMATION
  Report Type: Spontaneous
  Country: US (occurrence: US)
  Receive Date: 20251204
  Receipt Date: 20251204
  Transmission Date: 20260118
  Serious: No
  Sender: CELLTRION
  Company Number: US-CELLTRION INC.-2024US030747

PATIENT

DRUGS (1)
  1. TRUXIMA [Suspect]
     Active Substance: RITUXIMAB-ABBS
     Indication: Neuromyelitis optica spectrum disorder
     Dosage: HAS BEEN ON TRUXIMA FOR THE LAST 2 YEARS
     Dates: start: 20240122

REACTIONS (3)
  - Intentional product use issue [Unknown]
  - Therapy interrupted [Unknown]
  - Insurance issue [Unknown]
